FAERS Safety Report 7165851-1 (Version None)
Quarter: 2010Q4

REPORT INFORMATION
  Report Type: 
  Country: None (occurrence: None)
  Receive Date: 20101215
  Receipt Date: 20091221
  Transmission Date: 20110411
  Serious: No
  Sender: FDA-Public Use
  Company Number: US-AMGEN-KDL381767

PATIENT

DRUGS (12)
  1. ENBREL [Suspect]
     Indication: RHEUMATOID ARTHRITIS
     Dosage: 50 MG, QWK
     Route: 058
     Dates: start: 20091021
  2. PREGABALIN [Concomitant]
     Dosage: 25 MG, UNK
  3. LISINOPRIL [Concomitant]
     Dosage: 2.5 MG, UNK
  4. MONTELUKAST [Concomitant]
     Dosage: 10 MG, UNK
  5. PANTOPRAZOLE SODIUM [Concomitant]
     Dosage: 20 MG, UNK
  6. CETIRIZINE HCL [Concomitant]
     Dosage: 5 MG, UNK
  7. DILTIAZEM HYDROCHLORIDE [Concomitant]
     Dosage: 100 MG, UNK
  8. LEVOTHYROXINE SODIUM [Concomitant]
     Dosage: 75 MG, UNK
  9. BUSPIRONE HYDROCHLORIDE [Concomitant]
     Dosage: 5 MG, UNK
  10. ALBUTEROL SULFATE [Concomitant]
     Dosage: .83 MILLION UNIT, UNK
  11. BUPROPION [Concomitant]
     Dosage: 75 MG, UNK
  12. HYDROCHLOROTHIAZIDE [Concomitant]
     Dosage: 12.5 MG, UNK

REACTIONS (5)
  - INJECTION SITE ERYTHEMA [None]
  - INJECTION SITE PRURITUS [None]
  - INJECTION SITE REACTION [None]
  - INJECTION SITE SWELLING [None]
  - SINUSITIS [None]
